FAERS Safety Report 19818262 (Version 1)
Quarter: 2021Q3

REPORT INFORMATION
  Report Type: Spontaneous
  Country: CA (occurrence: CA)
  Receive Date: 20210911
  Receipt Date: 20210911
  Transmission Date: 20211014
  Serious: Yes (Hospitalization)
  Sender: FDA-Public Use
  Company Number: CA-TEVA-2021-CA-1950670

PATIENT
  Age: 2 Year
  Sex: Female
  Weight: 12 kg

DRUGS (3)
  1. ETOPOSIDE INJECTION USP [Suspect]
     Active Substance: ETOPOSIDE
     Indication: NEUROBLASTOMA
     Dosage: 336 MILLIGRAM DAILY;
     Route: 042
  2. CISPLATIN INJECTION [Suspect]
     Active Substance: CISPLATIN
     Indication: NEUROBLASTOMA
     Dosage: 112 MILLIGRAM DAILY;
     Route: 041
  3. FILGRASTIM [Concomitant]
     Active Substance: FILGRASTIM
     Route: 065

REACTIONS (2)
  - Pancytopenia [Unknown]
  - Febrile neutropenia [Unknown]
